FAERS Safety Report 9863333 (Version 4)
Quarter: 2014Q1

REPORT INFORMATION
  Report Type: Spontaneous
  Country: DE (occurrence: DE)
  Receive Date: 20140203
  Receipt Date: 20140220
  Transmission Date: 20141002
  Serious: Yes (Other)
  Sender: FDA-Public Use
  Company Number: DE-AMGEN-DEUSP2014005979

PATIENT
  Age: 64 Year
  Sex: Male
  Weight: 85 kg

DRUGS (6)
  1. PROLIA [Suspect]
     Indication: OSTEOPOROSIS
     Dosage: 60 MG, Q6MO
     Route: 030
     Dates: start: 201205
  2. CALCIRETARD [Concomitant]
     Indication: OSTEOPOROSIS
     Dosage: UNK UNK, TID
     Route: 048
     Dates: start: 201205
  3. KALINOR RETARD P [Concomitant]
     Indication: OSTEOPOROSIS
     Dosage: 600 MG, QD
     Route: 048
     Dates: start: 201205
  4. DEKRISTOL [Concomitant]
     Indication: OSTEOPOROSIS
     Dosage: 20000 IE, 2 TIMES/WK
     Route: 048
     Dates: start: 201205
  5. CURAZINK [Concomitant]
     Indication: OSTEOPOROSIS
     Dosage: 15 MG, BID
     Route: 048
     Dates: start: 201205
  6. OLMETEC [Concomitant]
     Indication: HYPERTENSION
     Dosage: 10 MG, QD
     Route: 048
     Dates: start: 201112

REACTIONS (6)
  - Rash pustular [Recovered/Resolved]
  - Anxiety [Not Recovered/Not Resolved]
  - Eczema [Not Recovered/Not Resolved]
  - Rash pruritic [Recovered/Resolved]
  - Discomfort [Unknown]
  - Inflammation [Unknown]
